FAERS Safety Report 8681508 (Version 2)
Quarter: 2013Q1

REPORT INFORMATION
  Report Type: Spontaneous
  Country: CA (occurrence: CA)
  Receive Date: 20120725
  Receipt Date: 20130215
  Transmission Date: 20140127
  Serious: Yes (Other)
  Sender: FDA-Public Use
  Company Number: CA-JNJFOC-20111201892

PATIENT
  Sex: Female
  Weight: 67 kg

DRUGS (5)
  1. SIMPONI [Suspect]
     Indication: RHEUMATOID ARTHRITIS
     Route: 058
     Dates: start: 20110617
  2. METHOTREXATE [Suspect]
     Indication: RHEUMATOID ARTHRITIS
     Route: 065
     Dates: start: 20100922
  3. PREDNISONE [Suspect]
     Indication: PRODUCT USED FOR UNKNOWN INDICATION
     Dosage: FREQUENT COURSE
     Route: 065
  4. PLAQUENIL [Concomitant]
     Indication: RHEUMATOID ARTHRITIS
     Route: 065
     Dates: start: 20100722, end: 20110621
  5. FOSAVANCE [Concomitant]
     Indication: OSTEOPOROSIS
     Route: 065
     Dates: start: 201007

REACTIONS (2)
  - Oral mucosa erosion [Recovered/Resolved]
  - Herpes virus infection [Recovered/Resolved]
